FAERS Safety Report 9067776 (Version 1)
Quarter: 2013Q1

REPORT INFORMATION
  Report Type: Spontaneous
  Country: US (occurrence: US)
  Receive Date: 20130206
  Receipt Date: 20130206
  Transmission Date: 20140127
  Serious: No
  Sender: FDA-Public Use
  Company Number: US-ASTRAZENECA-2013SE07227

PATIENT
  Age: 56 Year
  Sex: Female

DRUGS (6)
  1. CRESTOR [Suspect]
     Indication: BLOOD CHOLESTEROL INCREASED
     Route: 048
     Dates: start: 201107, end: 201207
  2. CRESTOR [Suspect]
     Indication: BLOOD CHOLESTEROL INCREASED
     Route: 048
     Dates: start: 201207, end: 20121227
  3. CRESTOR [Suspect]
     Indication: BLOOD CHOLESTEROL INCREASED
     Route: 048
     Dates: start: 20121228
  4. PRESTIQ [Concomitant]
  5. HYDROCHLORTHIAZIDE [Concomitant]
  6. CLARITIN [Concomitant]

REACTIONS (5)
  - Hyperhidrosis [Unknown]
  - Cough [Unknown]
  - Pruritus [Recovering/Resolving]
  - Blood cholesterol increased [Unknown]
  - Drug ineffective [Unknown]
